FAERS Safety Report 4527836-0 (Version None)
Quarter: 2004Q4

REPORT INFORMATION
  Report Type: 
  Country: None (occurrence: None)
  Receive Date: 20041123
  Receipt Date: 20040308
  Transmission Date: 20050328
  Serious: Yes (Hospitalization)
  Sender: FDA-Public Use
  Company Number: ATO-04-0219

PATIENT
  Age: 56 Year
  Sex: Female
  Weight: 62.5964 kg

DRUGS (2)
  1. TRISENOX [Suspect]
     Indication: MULTIPLE MYELOMA
     Dosage: 17.5 MG, IVI
     Route: 042
     Dates: end: 20040217
  2. MELPHALAN [Suspect]
     Indication: MULTIPLE MYELOMA
     Dosage: (7 MG, X4 DAYS EVERY 42 DAYS), ORAL
     Route: 048
     Dates: end: 20040129

REACTIONS (3)
  - ANAEMIA [None]
  - HERPES ZOSTER [None]
  - NEUTROPENIA [None]
